FAERS Safety Report 4429695-3 (Version None)
Quarter: 2004Q3

REPORT INFORMATION
  Report Type: 
  Country: None (occurrence: None)
  Receive Date: 20040816
  Receipt Date: 20040803
  Transmission Date: 20050211
  Serious: Yes (Other)
  Sender: FDA-Public Use
  Company Number: 2004053291

PATIENT
  Age: 67 Year
  Sex: Male

DRUGS (4)
  1. LIPITOR [Suspect]
     Indication: ILL-DEFINED DISORDER
     Dosage: 20 MG (20 MG, 1 IN 1 D), ORAL
     Route: 048
  2. ROFECOXIB [Suspect]
     Indication: ILL-DEFINED DISORDER
     Dosage: 25 MG (25 MG, 1 IN 1 D)
  3. IBUPROFEN [Concomitant]
  4. ACETAMINOPHEN [Concomitant]

REACTIONS (11)
  - ANOREXIA [None]
  - ARTHRALGIA [None]
  - ASCITES [None]
  - COAGULOPATHY [None]
  - COGNITIVE DISORDER [None]
  - HEPATIC FAILURE [None]
  - HEPATITIS [None]
  - MUSCLE ATROPHY [None]
  - RENAL FAILURE [None]
  - SLEEP DISORDER [None]
  - VARICES OESOPHAGEAL [None]
